FAERS Safety Report 20121162 (Version 1)
Quarter: 2021Q4

REPORT INFORMATION
  Report Type: Report from Study
  Country: CA (occurrence: CA)
  Receive Date: 20211127
  Receipt Date: 20211127
  Transmission Date: 20220303
  Serious: Yes (Other)
  Sender: FDA-Public Use
  Company Number: CA-TAKEDA-CA202002534

PATIENT

DRUGS (24)
  1. HUMAN IMMUNOGLOBULIN G [Suspect]
     Active Substance: HUMAN IMMUNOGLOBULIN G
     Indication: Secondary immunodeficiency
     Dosage: 10 MILLIGRAM, 1X/WEEK
     Route: 065
     Dates: start: 20181020
  2. OMEPRAZOLE [Concomitant]
     Active Substance: OMEPRAZOLE
     Indication: Product used for unknown indication
  3. AMOXICILLIN [Concomitant]
     Active Substance: AMOXICILLIN
     Indication: Product used for unknown indication
  4. TEVA AMITRIPTYLINE [Concomitant]
     Indication: Product used for unknown indication
  5. EZETIMIBE [Concomitant]
     Active Substance: EZETIMIBE
     Indication: Product used for unknown indication
  6. APO-METOPROLOL (TYPE L) [Concomitant]
     Indication: Product used for unknown indication
  7. CANDESARTAN [Concomitant]
     Active Substance: CANDESARTAN
     Indication: Product used for unknown indication
  8. HYDROCHLOROTHIAZIDE [Concomitant]
     Active Substance: HYDROCHLOROTHIAZIDE
     Indication: Product used for unknown indication
  9. CO RIZATRIPTAN ODT [Concomitant]
     Indication: Product used for unknown indication
  10. FLUCONAZOLE TEVA [Concomitant]
     Indication: Product used for unknown indication
  11. HIZENTRA [Concomitant]
     Active Substance: HUMAN IMMUNOGLOBULIN G
     Indication: Product used for unknown indication
     Dosage: 5 MILLILITER
     Route: 065
     Dates: start: 20150101
  12. COLCHICINE [Concomitant]
     Active Substance: COLCHICINE
     Indication: Product used for unknown indication
  13. NITROFURANTOIN [Concomitant]
     Active Substance: NITROFURANTOIN
     Indication: Product used for unknown indication
  14. BIOTIN GUMMY [Concomitant]
     Indication: Product used for unknown indication
  15. FUSIDIC ACID [Concomitant]
     Active Substance: FUSIDIC ACID
     Indication: Product used for unknown indication
  16. NAPROXEN [Concomitant]
     Active Substance: NAPROXEN
     Indication: Product used for unknown indication
  17. PMS-CLARITHROMYCIN [Concomitant]
     Indication: Product used for unknown indication
  18. ESCITALOPRAM OXALATE [Concomitant]
     Active Substance: ESCITALOPRAM OXALATE
     Indication: Depression
     Dosage: UNK
     Route: 065
  19. OXITRIPTAN [Concomitant]
     Active Substance: OXITRIPTAN
     Dosage: UNK
     Route: 065
  20. ROSUVASTATIN CALCIUM [Concomitant]
     Active Substance: ROSUVASTATIN CALCIUM
  21. FEBUXOSTAT [Concomitant]
     Active Substance: FEBUXOSTAT
     Dosage: 80 MILLIGRAM TAKE HALF TAB DAILY
     Route: 065
  22. MINERALS\VITAMINS [Concomitant]
     Active Substance: MINERALS\VITAMINS
  23. ELETRIPTAN [Concomitant]
     Active Substance: ELETRIPTAN
  24. IVIGLOB EX [Concomitant]
     Active Substance: HUMAN IMMUNOGLOBULIN G

REACTIONS (12)
  - Neuropathy peripheral [Not Recovered/Not Resolved]
  - Hepatic fibrosis [Not Recovered/Not Resolved]
  - Hepatitis [Unknown]
  - Sinusitis [Unknown]
  - Infection [Unknown]
  - Illness [Unknown]
  - Gout [Not Recovered/Not Resolved]
  - Urinary tract infection [Not Recovered/Not Resolved]
  - Headache [Not Recovered/Not Resolved]
  - Migraine [Not Recovered/Not Resolved]
  - Hepatic steatosis [Not Recovered/Not Resolved]
  - Vitamin B6 increased [Not Recovered/Not Resolved]
